FAERS Safety Report 8418901-6 (Version None)
Quarter: 2012Q2

REPORT INFORMATION
  Report Type: 
  Country: None (occurrence: None)
  Receive Date: 20120607
  Receipt Date: 20120528
  Transmission Date: 20120825
  Serious: Yes (Hospitalization)
  Sender: FDA-Public Use
  Company Number: JP-ROCHE-1072763

PATIENT
  Sex: Female
  Weight: 45.9 kg

DRUGS (12)
  1. BETAMETHASONE [Concomitant]
     Dosage: TDD: 3 TABLETS
     Dates: start: 20120524, end: 20120527
  2. EKSALB [Concomitant]
  3. DOCETAXEL [Suspect]
     Indication: BREAST CANCER
     Dosage: INFUSION
     Dates: start: 20120516
  4. BLINDED PERTUZUMAB [Suspect]
     Indication: BREAST CANCER
     Dosage: INFUSION
     Dates: start: 20120516
  5. LENOGRASTIM [Concomitant]
     Dates: start: 20120524, end: 20120527
  6. CARBOPLATIN [Suspect]
     Indication: BREAST CANCER
     Dosage: AUC6
     Dates: start: 20120516
  7. LOXOPROFEN SODIUM [Concomitant]
     Dates: start: 20120520
  8. CIPROFLOXACIN HCL [Concomitant]
     Dates: start: 20120524, end: 20120525
  9. HERCEPTIN [Suspect]
     Indication: BREAST CANCER
     Dosage: INFUSION
     Dates: start: 20120516
  10. TEPRENONE [Concomitant]
     Dates: start: 20120520
  11. SODIUM GUALENATE [Concomitant]
     Dates: start: 20120516
  12. BROTIZOLAM [Concomitant]

REACTIONS (2)
  - DECREASED APPETITE [None]
  - MALAISE [None]
